FAERS Safety Report 6810169-7 (Version None)
Quarter: 2010Q2

REPORT INFORMATION
  Report Type: 
  Country: None (occurrence: None)
  Receive Date: 20100630
  Receipt Date: 20100625
  Transmission Date: 20101027
  Serious: Yes (Other)
  Sender: FDA-Public Use
  Company Number: US-MERCK-1003USA02481

PATIENT
  Age: 60 Year
  Sex: Female
  Weight: 75 kg

DRUGS (6)
  1. FOSAMAX [Suspect]
     Indication: OSTEOPENIA
     Route: 048
     Dates: start: 20040101
  2. FOSAMAX [Suspect]
     Route: 048
  3. SYNTHROID [Concomitant]
     Route: 065
  4. LEXAPRO [Concomitant]
     Route: 065
  5. HYDROCORTISONE [Concomitant]
     Route: 065
  6. FLORINEF [Concomitant]
     Route: 065

REACTIONS (3)
  - BONE DENSITY DECREASED [None]
  - ROAD TRAFFIC ACCIDENT [None]
  - SPINAL FRACTURE [None]
